FAERS Safety Report 12978459 (Version 1)
Quarter: 2016Q4

REPORT INFORMATION
  Report Type: Spontaneous
  Country: US (occurrence: US)
  Receive Date: 20161123
  Receipt Date: 20161123
  Transmission Date: 20170207
  Serious: No
  Sender: FDA-Public Use
  Company Number: None

PATIENT
  Age: 60 Year
  Sex: Female

DRUGS (1)
  1. THALOMID [Suspect]
     Active Substance: THALIDOMIDE
     Indication: ERYTHEMA NODOSUM
     Route: 048
     Dates: start: 20140314, end: 20140326

REACTIONS (3)
  - Rash pruritic [None]
  - Blister [None]
  - Pain [None]

NARRATIVE: CASE EVENT DATE: 20140318
